FAERS Safety Report 5759581-8 (Version None)
Quarter: 2008Q2

REPORT INFORMATION
  Report Type: 
  Country: None (occurrence: None)
  Receive Date: 20080605
  Receipt Date: 20080530
  Transmission Date: 20081010
  Serious: Yes (Hospitalization)
  Sender: FDA-Public Use
  Company Number: JP-ASTRAZENECA-2008AP04174

PATIENT
  Age: 70 Year
  Sex: Female

DRUGS (1)
  1. 1% DIPRIVAN INJECTION [Suspect]
     Dosage: DOSE UNKNOWN
     Route: 042

REACTIONS (1)
  - PULMONARY OEDEMA [None]
